FAERS Safety Report 25318134 (Version 1)
Quarter: 2025Q2

REPORT INFORMATION
  Report Type: Spontaneous
  Country: US (occurrence: None)
  Receive Date: 20250514
  Receipt Date: 20250514
  Transmission Date: 20250716
  Serious: Yes (Other)
  Sender: FDA-CTU
  Company Number: None

PATIENT
  Age: 62 Year
  Sex: Male

DRUGS (11)
  1. POMALYST [Suspect]
     Active Substance: POMALIDOMIDE
     Indication: Bone cancer
     Dosage: FREQUENCY : DAILY;?
     Dates: start: 20241025
  2. IACETAMIN TAB 500MG [Concomitant]
  3. ACYCLOVIR TAB 800MG [Concomitant]
  4. AMLODIPINE [Concomitant]
     Active Substance: AMLODIPINE BESYLATE
  5. AMLODIPINE TAB5MG [Concomitant]
  6. BACLOFEN [Concomitant]
     Active Substance: BACLOFEN
  7. DEXAMETHASONE [Concomitant]
     Active Substance: DEXAMETHASONE
  8. ELIQUIS [Concomitant]
     Active Substance: APIXABAN
  9. ELIQUIS [Concomitant]
     Active Substance: APIXABAN
  10. FUROSEMIDE [Concomitant]
     Active Substance: FUROSEMIDE
  11. KYPROLIS SOL 60MG [Concomitant]

REACTIONS (1)
  - Bone cancer [None]

NARRATIVE: CASE EVENT DATE: 20250430
